FAERS Safety Report 5853213-6 (Version None)
Quarter: 2008Q3

REPORT INFORMATION
  Report Type: 
  Country: None (occurrence: None)
  Receive Date: 20080818
  Receipt Date: 20080616
  Transmission Date: 20090109
  Serious: No
  Sender: FDA-Public Use
  Company Number: WAES 0806USA03053

PATIENT
  Age: 62 Year
  Sex: Female

DRUGS (9)
  1. JANUVIA [Suspect]
     Indication: TYPE 2 DIABETES MELLITUS
     Dosage: PO
     Route: 048
     Dates: start: 20080528
  2. ACTOS [Concomitant]
  3. COREG [Concomitant]
  4. EXFORGE [Concomitant]
  5. PRILOSEC [Concomitant]
  6. SYNTHROID [Concomitant]
  7. VYTORIN [Concomitant]
  8. POTASSIUM (UNSPECIFIED) [Concomitant]
  9. TORSEMIDE [Concomitant]

REACTIONS (2)
  - PARAESTHESIA [None]
  - PRURITUS [None]
